FAERS Safety Report 4609840-7 (Version None)
Quarter: 2005Q1

REPORT INFORMATION
  Report Type: 
  Country: None (occurrence: None)
  Receive Date: 20050316
  Receipt Date: 20050310
  Transmission Date: 20050727
  Serious: Yes (Other)
  Sender: FDA-Public Use
  Company Number: 200512195GDDC

PATIENT
  Age: 8 Year
  Sex: Male

DRUGS (1)
  1. DESMOSPRAY [Suspect]
     Indication: ENURESIS
     Route: 045
     Dates: start: 20040602, end: 20040701

REACTIONS (5)
  - ABNORMAL BEHAVIOUR [None]
  - AFFECT LABILITY [None]
  - CRYING [None]
  - INSOMNIA [None]
  - PSYCHOMOTOR HYPERACTIVITY [None]
